FAERS Safety Report 9957565 (Version 1)
Quarter: 2014Q1

REPORT INFORMATION
  Report Type: Report from Study
  Country: US (occurrence: US)
  Receive Date: 20140304
  Receipt Date: 20140304
  Transmission Date: 20141002
  Serious: No
  Sender: FDA-Public Use
  Company Number: US-ABBVIE-13P-163-1095902-00

PATIENT
  Age: 30 Year
  Sex: Male

DRUGS (4)
  1. HUMIRA [Suspect]
     Indication: PSORIASIS
     Dates: start: 20130430
  2. COUMADIN [Concomitant]
     Indication: CEREBROVASCULAR ACCIDENT
     Dosage: 5 MG MONDAY THROUGH FRIDAY
     Route: 048
  3. COUMADIN [Concomitant]
     Dosage: 2.5 MG SATURDAY AND SUNDAY
  4. CITALOPRAM [Concomitant]
     Indication: AGITATION
     Dosage: 20 MG DAILY

REACTIONS (1)
  - Psoriasis [Not Recovered/Not Resolved]
